FAERS Safety Report 25733056 (Version 2)
Quarter: 2025Q3

REPORT INFORMATION
  Report Type: Report from Study
  Country: CA (occurrence: CA)
  Receive Date: 20250828
  Receipt Date: 20250914
  Transmission Date: 20251021
  Serious: Yes (Hospitalization)
  Sender: ABBVIE
  Company Number: CA-ABBVIE-6418832

PATIENT
  Age: 74 Year
  Sex: Male

DRUGS (3)
  1. LUPRON DEPOT [Suspect]
     Active Substance: LEUPROLIDE ACETATE
     Indication: Prostate cancer
     Dosage: FORM STRENGTH: 30 MG, DOSE FORM: POWDER AND SOLVENT FOR SUSPENSION FOR INJECTION IN PRE-FILLED SY...
     Route: 030
     Dates: start: 20240413
  2. MIRTAZAPINE [Concomitant]
     Active Substance: MIRTAZAPINE
     Indication: Affective disorder
     Route: 048
  3. DAROLUTAMIDE [Concomitant]
     Active Substance: DAROLUTAMIDE
     Indication: Prostate cancer
     Dosage: DOSE FORM PO
     Route: 048
     Dates: start: 20240510

REACTIONS (3)
  - Flank pain [Unknown]
  - Urethral pain [Unknown]
  - Renal failure [Recovered/Resolved]

NARRATIVE: CASE EVENT DATE: 20250811
